FAERS Safety Report 6195641-8 (Version None)
Quarter: 2009Q2

REPORT INFORMATION
  Report Type: 
  Country: None (occurrence: None)
  Receive Date: 20090519
  Receipt Date: 20090515
  Transmission Date: 20091009
  Serious: Yes (Death, Hospitalization, Other)
  Sender: FDA-Public Use
  Company Number: US-ABBOTT-09P-163-0573837-00

PATIENT
  Age: 7 Year

DRUGS (6)
  1. CYCLOSPORINE [Suspect]
     Indication: LYMPHOHISTIOCYTOSIS
     Dosage: NOT REPORTED
  2. CYCLOSPORINE [Suspect]
     Indication: HISTIOCYTOSIS HAEMATOPHAGIC
  3. DEXAMETHASONE 4MG TAB [Concomitant]
     Indication: LYMPHOHISTIOCYTOSIS
     Dosage: NOT REPORTED
  4. DEXAMETHASONE 4MG TAB [Concomitant]
     Indication: HISTIOCYTOSIS HAEMATOPHAGIC
  5. ETOPOSIDE [Concomitant]
     Indication: HISTIOCYTOSIS HAEMATOPHAGIC
     Dosage: NOT REPORTED
  6. ETOPOSIDE [Concomitant]
     Indication: LYMPHOHISTIOCYTOSIS

REACTIONS (7)
  - BLOOD PRESSURE INCREASED [None]
  - CEREBRAL HAEMORRHAGE [None]
  - DRUG LEVEL INCREASED [None]
  - LIVER FUNCTION TEST ABNORMAL [None]
  - NEUROTOXICITY [None]
  - RENAL IMPAIRMENT [None]
  - REVERSIBLE POSTERIOR LEUKOENCEPHALOPATHY SYNDROME [None]
